FAERS Safety Report 9169497 (Version 2)
Quarter: 2013Q2

REPORT INFORMATION
  Report Type: Report from Study
  Country: DE (occurrence: DE)
  Receive Date: 20130318
  Receipt Date: 20130426
  Transmission Date: 20140414
  Serious: Yes (Hospitalization, Other)
  Sender: FDA-Public Use
  Company Number: DE-UCBSA-080384

PATIENT
  Age: 41 Year
  Sex: Male

DRUGS (6)
  1. VIMPAT [Suspect]
     Indication: EPILEPSY
     Dosage: DOSE: 50 MG DAILY
     Dates: start: 20090505, end: 2009
  2. VIMPAT [Suspect]
     Indication: EPILEPSY
     Dosage: DOSE: 200 MG DAILY
     Dates: start: 2009, end: 2009
  3. VIMPAT [Suspect]
     Indication: EPILEPSY
     Dosage: DOSE: 300 MG DAILY
     Dates: start: 2009
  4. TOPIRAMATE [Concomitant]
     Indication: EPILEPSY
     Dosage: DOSE: 200 MG DAILY
  5. PHENYTOIN [Concomitant]
     Indication: EPILEPSY
     Dosage: DOSE: 200 MG DAILY
     Dates: end: 2009
  6. PHENYTOIN [Concomitant]
     Indication: EPILEPSY
     Dosage: DOSE: 400 MG DAILY
     Dates: start: 2009

REACTIONS (1)
  - Status epilepticus [Unknown]
